FAERS Safety Report 20637008 (Version 1)
Quarter: 2022Q1

REPORT INFORMATION
  Report Type: Spontaneous
  Country: FR (occurrence: FR)
  Receive Date: 20220325
  Receipt Date: 20220325
  Transmission Date: 20220423
  Serious: Yes (Hospitalization)
  Sender: FDA-Public Use
  Company Number: None

PATIENT
  Age: 57 Year
  Sex: Male
  Weight: 88 kg

DRUGS (5)
  1. VALSARTAN [Suspect]
     Active Substance: VALSARTAN
     Indication: Hypertension
     Dosage: 120MG
     Route: 048
     Dates: end: 20220207
  2. CISPLATIN [Suspect]
     Active Substance: CISPLATIN
     Indication: Squamous cell carcinoma of the hypopharynx
     Dosage: 100 MG/ M2, FORM STRENGTH: 10 MG/10 ML
     Route: 042
     Dates: start: 20220107, end: 20220128
  3. CLOPIDOGREL HYDROCHLORIDE [Concomitant]
     Active Substance: CLOPIDOGREL HYDROCHLORIDE
     Indication: Prophylaxis
     Dosage: 75MG
     Route: 048
  4. BISOPROLOL (HEMIFUMARATE) [Concomitant]
     Indication: Product used for unknown indication
     Dosage: 2.5 MG
     Route: 048
  5. ATORVASTATIN [Concomitant]
     Active Substance: ATORVASTATIN
     Indication: Dyslipidaemia
     Dosage: 80 MG
     Route: 048

REACTIONS (1)
  - Renal tubular necrosis [Recovering/Resolving]
